FAERS Safety Report 10099940 (Version 1)
Quarter: 2014Q2

REPORT INFORMATION
  Report Type: Report from Study
  Country: US (occurrence: US)
  Receive Date: 20140423
  Receipt Date: 20140423
  Transmission Date: 20141212
  Serious: Yes (Hospitalization, Other)
  Sender: FDA-Public Use
  Company Number: US-ABBVIE-14P-163-1224929-00

PATIENT
  Age: 75 Year
  Sex: Male
  Weight: 105.33 kg

DRUGS (17)
  1. HUMIRA [Suspect]
     Indication: RHEUMATOID ARTHRITIS
     Route: 058
     Dates: start: 201301, end: 201310
  2. ASPIRIN [Concomitant]
     Indication: CARDIAC DISORDER
  3. CLARITIN [Concomitant]
     Indication: HYPERSENSITIVITY
  4. COZAAR [Concomitant]
     Indication: HYPERTENSION
  5. MAGNESIUM [Concomitant]
     Indication: MINERAL SUPPLEMENTATION
  6. NEXIUM [Concomitant]
     Indication: GASTROOESOPHAGEAL REFLUX DISEASE
  7. PLAQUENIL [Concomitant]
     Indication: RHEUMATOID ARTHRITIS
  8. POTASSIUM [Concomitant]
     Indication: MINERAL SUPPLEMENTATION
  9. SPIRIVA [Concomitant]
     Indication: CHRONIC OBSTRUCTIVE PULMONARY DISEASE
  10. SYNTHROID [Concomitant]
     Indication: HYPOTHYROIDISM
  11. TYLENOL [Concomitant]
     Indication: PAIN
  12. VENTOLIN [Concomitant]
     Indication: CHRONIC OBSTRUCTIVE PULMONARY DISEASE
  13. TESTOSTERONE [Concomitant]
     Indication: BLOOD TESTOSTERONE DECREASED
  14. MULTIVITAMIN [Concomitant]
     Indication: VITAMIN SUPPLEMENTATION
  15. ZESTRIL [Concomitant]
     Indication: HYPERTENSION
  16. ACTONEL [Concomitant]
     Indication: BONE DISORDER
  17. SINGULAIR [Concomitant]
     Indication: HYPERSENSITIVITY

REACTIONS (6)
  - B-cell lymphoma [Recovered/Resolved]
  - Asthenia [Recovered/Resolved]
  - Asthenia [Recovered/Resolved]
  - Fall [Not Recovered/Not Resolved]
  - Weight decreased [Unknown]
  - Lymphadenopathy [Unknown]
